FAERS Safety Report 23273902 (Version 1)
Quarter: 2023Q4

REPORT INFORMATION
  Report Type: Report from Study
  Country: US (occurrence: US)
  Receive Date: 20231207
  Receipt Date: 20231207
  Transmission Date: 20240110
  Serious: Yes (Other)
  Sender: FDA-Public Use
  Company Number: US-ABBVIE-5528232

PATIENT
  Age: 73 Year
  Sex: Male

DRUGS (15)
  1. VENCLEXTA [Suspect]
     Active Substance: VENETOCLAX
     Indication: B-cell small lymphocytic lymphoma
     Dosage: FORM STRENGTH: 100 MG, TAKE 4 TABLET BY MOUTH ONCE DAILY TAKE WITH FOOD AND WATER
     Route: 048
     Dates: start: 201802
  2. VENCLEXTA [Suspect]
     Active Substance: VENETOCLAX
     Indication: B-cell small lymphocytic lymphoma
     Dosage: DAY 1 - PATIENT ADMITTED ON DAY 1 FOR IV HYDRATION DAY 2 - 1ST DOSE OF VENETOCLAX?GIVEN. MONITOR ...
     Route: 048
  3. ZOVIRAX [Concomitant]
     Active Substance: ACYCLOVIR
     Indication: Product used for unknown indication
     Dosage: FORM STRENGTH: 400 MG
     Route: 048
  4. ECOTRIN [Concomitant]
     Active Substance: ASPIRIN
     Indication: Product used for unknown indication
     Dosage: LOW STRENGTH 81 MG EC TABLET
     Route: 048
  5. LIPITOR [Concomitant]
     Active Substance: ATORVASTATIN CALCIUM
     Indication: Product used for unknown indication
     Dosage: FORM STRENGTH: 20 MG
     Route: 048
  6. DULCOLAX (BISACODYL) [Concomitant]
     Active Substance: BISACODYL
     Indication: Product used for unknown indication
     Dosage: FORM STRENGTH: 5 MG?EC TABLET
  7. TEMOVATE [Concomitant]
     Active Substance: CLOBETASOL PROPIONATE
     Indication: Product used for unknown indication
     Dosage: FORM STRENGTH: 0.05 % OINTMENT?APPLY TO AFFECTED AREA ON HAND TWICE DAILY AS NEEDED. USE 2 WEEKS ...
     Route: 061
  8. HYDROCORTISONE [Concomitant]
     Active Substance: HYDROCORTISONE
     Indication: Product used for unknown indication
     Dosage: FORM STRENGTH: 2.5 % CREAM?APPLY TO SCALY PATCHES ON EARS TWO TIMES DAILY AS NEEDED. USE 2 WEEKS ...
  9. ATROVENT [Concomitant]
     Active Substance: IPRATROPIUM BROMIDE
     Indication: Product used for unknown indication
     Dosage: FORM STRENGTH: 42 MCG 0.06 % NASAL SPRAY?USE 2 SPRAYS NASALLY 4 TIMES DAILY
     Route: 045
  10. NIZORAL [Concomitant]
     Active Substance: KETOCONAZOLE
     Indication: Antifungal treatment
     Dosage: APPLY TO FUNGUS ON THIGH TWO TIMES DAILY?FORM STRENGTH: 2%
     Route: 061
  11. LOPRESSOR [Concomitant]
     Active Substance: METOPROLOL TARTRATE
     Indication: Product used for unknown indication
     Dosage: FORM STRENGTH: 25 MG?TAKE 1 TABLET BY MOUTH TWO TIMES A DAY.
     Route: 048
  12. ANAPROX [Concomitant]
     Active Substance: NAPROXEN SODIUM
     Indication: Spondylitis
     Dosage: FROM STRENGTH: 220 MG?TAKE 220 MG BY MOUTH TAKES TWO TABLETS IN THE AM AND ONE TABLET AT NIGHT FO...
     Route: 048
  13. ANAPROX [Concomitant]
     Active Substance: NAPROXEN SODIUM
     Indication: Spondylitis
     Dosage: FROM STRENGTH: 220 MG?TAKE 220 MG BY MOUTH TAKES TWO TABLETS IN THE AM AND ONE TABLET AT NIGHT FO...
     Route: 048
  14. PRILOSEC [Concomitant]
     Active Substance: OMEPRAZOLE MAGNESIUM
     Indication: Product used for unknown indication
     Dosage: TAKE 1 CAPSULE BY MOUTH ONCE DAILY?FORM STRENGTH 20 MG
     Route: 048
  15. ZOFRAN [Concomitant]
     Active Substance: ONDANSETRON HYDROCHLORIDE
     Indication: Product used for unknown indication
     Dosage: TAKE 1 TABLET BY MOUTH EVERY 8 HOURS AS NEEDED.?FORM STRENGTH 8 MG
     Route: 048

REACTIONS (16)
  - Deafness neurosensory [Not Recovered/Not Resolved]
  - Platelet count decreased [Not Recovered/Not Resolved]
  - Dysphagia [Not Recovered/Not Resolved]
  - Lumbar spinal stenosis [Not Recovered/Not Resolved]
  - Dysuria [Not Recovered/Not Resolved]
  - Gastrooesophageal reflux disease [Not Recovered/Not Resolved]
  - Benign prostatic hyperplasia [Not Recovered/Not Resolved]
  - Arterial insufficiency [Not Recovered/Not Resolved]
  - Haematuria [Not Recovered/Not Resolved]
  - Nocturia [Not Recovered/Not Resolved]
  - Back pain [Not Recovered/Not Resolved]
  - Urinary straining [Not Recovered/Not Resolved]
  - Pollakiuria [Not Recovered/Not Resolved]
  - Erectile dysfunction [Not Recovered/Not Resolved]
  - Prostatic obstruction [Not Recovered/Not Resolved]
  - Lower urinary tract symptoms [Not Recovered/Not Resolved]

NARRATIVE: CASE EVENT DATE: 20180802
